FAERS Safety Report 24243692 (Version 1)
Quarter: 2024Q3

REPORT INFORMATION
  Report Type: Spontaneous
  Country: CO (occurrence: CO)
  Receive Date: 20240823
  Receipt Date: 20240823
  Transmission Date: 20241017
  Serious: Yes (Life-Threatening, Hospitalization, Other)
  Sender: BRISTOL MYERS SQUIBB
  Company Number: CO-BRISTOL-MYERS SQUIBB COMPANY-2024-132545

PATIENT
  Age: 41 Year
  Sex: Female

DRUGS (4)
  1. OPDIVO [Suspect]
     Active Substance: NIVOLUMAB
     Indication: Malignant melanoma
     Dosage: OPDIVO- 100MG/10ML AND OPDIVO 40 MG/4ML
  2. OPDIVO [Suspect]
     Active Substance: NIVOLUMAB
     Dosage: OPDIVO- 100MG/10ML AND OPDIVO 40 MG/4ML
  3. OPDIVO [Suspect]
     Active Substance: NIVOLUMAB
     Dosage: OPDIVO- 100MG/10ML AND OPDIVO 40 MG/4ML
  4. ACETAMINOPHEN\DIPHENHYDRAMINE HYDROCHLORIDE [Concomitant]
     Active Substance: ACETAMINOPHEN\DIPHENHYDRAMINE HYDROCHLORIDE
     Indication: Premedication

REACTIONS (7)
  - Leukocytosis [Recovered/Resolved]
  - Distributive shock [Recovered/Resolved]
  - Pyrexia [Recovered/Resolved]
  - Hypothyroidism [Recovered/Resolved]
  - Incorrect product administration duration [Unknown]
  - Anaphylactic shock [Recovered/Resolved]
  - Septic shock [Recovered/Resolved]

NARRATIVE: CASE EVENT DATE: 20240321
